FAERS Safety Report 19675287 (Version 1)
Quarter: 2021Q3

REPORT INFORMATION
  Report Type: Spontaneous
  Country: US (occurrence: US)
  Receive Date: 20210809
  Receipt Date: 20210809
  Transmission Date: 20211014
  Serious: No
  Sender: FDA-Public Use
  Company Number: US-BAYER-2021-189592

PATIENT
  Age: 94 Year
  Sex: Male

DRUGS (1)
  1. CLARITIN [Suspect]
     Active Substance: LORATADINE
     Dosage: UNK
     Route: 048
     Dates: start: 20210804

REACTIONS (2)
  - Headache [None]
  - Feeling abnormal [Unknown]

NARRATIVE: CASE EVENT DATE: 20210804
